FAERS Safety Report 11997850 (Version 1)
Quarter: 2016Q1

REPORT INFORMATION
  Report Type: Spontaneous
  Country: US (occurrence: None)
  Receive Date: 20160202
  Receipt Date: 20160202
  Transmission Date: 20160526
  Serious: Yes (Hospitalization)
  Sender: FDA-Public Use
  Company Number: None

PATIENT
  Age: 66 Year
  Sex: Male

DRUGS (2)
  1. BRILINTA [Suspect]
     Active Substance: TICAGRELOR
     Indication: PERCUTANEOUS CORONARY INTERVENTION
     Route: 048
     Dates: start: 20151009, end: 20151012
  2. BRILINTA [Suspect]
     Active Substance: TICAGRELOR
     Indication: PERCUTANEOUS CORONARY INTERVENTION
     Route: 048
     Dates: start: 20151009

REACTIONS (11)
  - Hypertension [None]
  - Lung disorder [None]
  - Type 2 diabetes mellitus [None]
  - Unevaluable event [None]
  - Cardiac failure congestive [None]
  - Cardiac disorder [None]
  - Bradycardia [None]
  - Hyperkalaemia [None]
  - Anaemia [None]
  - Syncope [None]
  - Chronic kidney disease [None]

NARRATIVE: CASE EVENT DATE: 20151020
